FAERS Safety Report 4848235-8 (Version None)
Quarter: 2005Q4

REPORT INFORMATION
  Report Type: 
  Country: None (occurrence: None)
  Receive Date: 20051208
  Receipt Date: 20051207
  Transmission Date: 20060501
  Serious: Yes (Death)
  Sender: FDA-Public Use
  Company Number: US-JNJFOC-20051104883

PATIENT
  Age: 19 Year
  Sex: Male

DRUGS (1)
  1. CONCERTA [Suspect]
     Route: 048

REACTIONS (2)
  - DEATH [None]
  - HEADACHE [None]
